FAERS Safety Report 4781956-4 (Version None)
Quarter: 2005Q3

REPORT INFORMATION
  Report Type: 
  Country: None (occurrence: None)
  Receive Date: 20050928
  Receipt Date: 20050818
  Transmission Date: 20060218
  Serious: Yes (Hospitalization, Disabling, Other)
  Sender: FDA-Public Use
  Company Number: US-MERCK-0508USA03224

PATIENT
  Age: 69 Year
  Sex: Female
  Weight: 95 kg

DRUGS (5)
  1. ZOCOR [Suspect]
     Indication: BLOOD CHOLESTEROL INCREASED
     Route: 048
  2. ZOCOR [Suspect]
     Route: 048
  3. PRINIVIL [Concomitant]
     Indication: HYPERTENSION
     Route: 048
  4. HYDRODIURIL [Concomitant]
     Indication: HYPERTENSION
     Route: 048
  5. PROZAC [Concomitant]
     Indication: DEPRESSION
     Route: 048

REACTIONS (2)
  - PANCREATIC CYST [None]
  - PANCREATITIS [None]
